FAERS Safety Report 24438431 (Version 3)
Quarter: 2025Q2

REPORT INFORMATION
  Report Type: Spontaneous
  Country: US (occurrence: US)
  Receive Date: 20241015
  Receipt Date: 20250425
  Transmission Date: 20250716
  Serious: No
  Sender: PFIZER
  Company Number: US-PFIZER INC-202400245474

PATIENT
  Age: 74 Year
  Sex: Female
  Weight: 95.25 kg

DRUGS (8)
  1. IBRANCE [Suspect]
     Active Substance: PALBOCICLIB
     Indication: Breast cancer metastatic
     Dates: start: 202409
  2. IBRANCE [Suspect]
     Active Substance: PALBOCICLIB
  3. FULVESTRANT [Suspect]
     Active Substance: FULVESTRANT
     Dates: start: 202409
  4. LANSOPRAZOLE [Suspect]
     Active Substance: LANSOPRAZOLE
     Indication: Gastrointestinal disorder
     Dosage: 30 MG, 2X/DAY
  5. LANSOPRAZOLE [Suspect]
     Active Substance: LANSOPRAZOLE
     Dosage: 30 MG, 1X/DAY
  6. PHENTERMINE HYDROCHLORIDE [Suspect]
     Active Substance: PHENTERMINE HYDROCHLORIDE
     Indication: Obesity
     Dosage: 37.5 MG, 1X/DAY
  7. ZYRTEC [Concomitant]
     Active Substance: CETIRIZINE HYDROCHLORIDE
     Indication: Hypersensitivity
     Dosage: 10 MG, 1X/DAY
  8. ATENOLOL [Concomitant]
     Active Substance: ATENOLOL
     Indication: Hypertension

REACTIONS (10)
  - Red blood cell count decreased [Unknown]
  - Weight increased [Unknown]
  - Eosinophil count decreased [Unknown]
  - Mean cell volume increased [Unknown]
  - Mean cell volume increased [Unknown]
  - Full blood count decreased [Unknown]
  - White blood cell count decreased [Unknown]
  - Fatigue [Unknown]
  - Decreased appetite [Not Recovered/Not Resolved]
  - Neutrophil count decreased [Unknown]
